FAERS Safety Report 4344801-7 (Version None)
Quarter: 2004Q2

REPORT INFORMATION
  Report Type: 
  Country: None (occurrence: None)
  Receive Date: 20040420
  Receipt Date: 20040408
  Transmission Date: 20050107
  Serious: Yes (Hospitalization)
  Sender: FDA-Public Use
  Company Number: US-JNJFOC-20040401691

PATIENT
  Age: 78 Year
  Sex: Female

DRUGS (10)
  1. INFLIXIMAB (INFLIXIMAB, RECOMBINANT) LYOPHILIZED POWDER [Suspect]
     Indication: RHEUMATOID ARTHRITIS
     Dates: start: 20010411
  2. METHOTREXATE [Concomitant]
  3. BETAPACE [Concomitant]
  4. COUMADIN [Concomitant]
  5. SYNTHROID [Concomitant]
  6. FOLIC ACID [Concomitant]
  7. PRAVACHOL [Concomitant]
  8. ASPIRIN [Concomitant]
  9. CITRACAL (CALCIUM CITRATE) [Concomitant]
  10. CENTRUM SILVER (CENTRUM SILVER) [Concomitant]

REACTIONS (2)
  - ATRIAL FIBRILLATION [None]
  - SICK SINUS SYNDROME [None]
